FAERS Safety Report 13432963 (Version 1)
Quarter: 2017Q2

REPORT INFORMATION
  Report Type: Spontaneous
  Country: AT (occurrence: AT)
  Receive Date: 20170412
  Receipt Date: 20170412
  Transmission Date: 20170830
  Serious: Yes (Other)
  Sender: FDA-Public Use
  Company Number: AT-SA-2017SA062476

PATIENT
  Sex: Female

DRUGS (1)
  1. AMARYL [Suspect]
     Active Substance: GLIMEPIRIDE
     Route: 048

REACTIONS (4)
  - Hyperthyroidism [Unknown]
  - Hypoglycaemia [Unknown]
  - Hepatic function abnormal [Unknown]
  - Renal impairment [Unknown]
